FAERS Safety Report 20510681 (Version 6)
Quarter: 2023Q2

REPORT INFORMATION
  Report Type: Spontaneous
  Country: JP (occurrence: JP)
  Receive Date: 20220224
  Receipt Date: 20230428
  Transmission Date: 20230721
  Serious: Yes (Death, Hospitalization, Disabling, Other)
  Sender: FDA-Public Use
  Company Number: JP-ALXN-A202202462

PATIENT
  Age: 81 Year
  Sex: Female
  Weight: 45 kg

DRUGS (3)
  1. RIFAMPIN [Suspect]
     Active Substance: RIFAMPIN
     Indication: Pulmonary tuberculosis
     Dosage: 150 MG, TID
     Route: 048
     Dates: start: 20210513, end: 20220331
  2. SOLIRIS [Suspect]
     Active Substance: ECULIZUMAB
     Indication: Myasthenia gravis
     Dosage: 900 MG, QW
     Route: 042
     Dates: start: 20220119, end: 20220216
  3. ISCOTIN                            /00030201/ [Concomitant]
     Indication: Pulmonary tuberculosis
     Dosage: 300 MG, QD
     Route: 048
     Dates: start: 20210513, end: 20220331

REACTIONS (3)
  - Death [Fatal]
  - Psychotic disorder [Fatal]
  - Myasthenia gravis [Unknown]

NARRATIVE: CASE EVENT DATE: 20220201
